FAERS Safety Report 5085296-8 (Version None)
Quarter: 2006Q3

REPORT INFORMATION
  Report Type: 
  Country: None (occurrence: None)
  Receive Date: 20060816
  Receipt Date: 20060801
  Transmission Date: 20061208
  Serious: Yes (Other)
  Sender: FDA-Public Use
  Company Number: 2006BH012552

PATIENT
  Age: 27 Year
  Sex: Male

DRUGS (2)
  1. REGLAN [Suspect]
     Indication: NAUSEA
     Dosage: 10MG;3X A DAY
  2. CHLOROQUINE PHOSPHATE [Concomitant]

REACTIONS (4)
  - ABDOMINAL PAIN [None]
  - DYSTONIA [None]
  - MUSCLE RIGIDITY [None]
  - MYALGIA [None]
